FAERS Safety Report 20653944 (Version 1)
Quarter: 2022Q1

REPORT INFORMATION
  Report Type: Spontaneous
  Country: US (occurrence: US)
  Receive Date: 20220330
  Receipt Date: 20220330
  Transmission Date: 20220423
  Serious: No
  Sender: FDA-Public Use
  Company Number: US-PFIZER INC-202200440509

PATIENT
  Age: 70 Year
  Sex: Female
  Weight: 61.23 kg

DRUGS (1)
  1. BACTERIOSTATIC SODIUM CHLORIDE [Suspect]
     Active Substance: SODIUM CHLORIDE
     Dosage: 10 ML (0.9% AQUA FLUSH SYRINGE, 10ML IN 12ML SYRINGE   )

REACTIONS (4)
  - Swelling face [Unknown]
  - Mouth swelling [Unknown]
  - Swollen tongue [Unknown]
  - Contusion [Unknown]

NARRATIVE: CASE EVENT DATE: 20220224
